FAERS Safety Report 7303578-3 (Version None)
Quarter: 2011Q1

REPORT INFORMATION
  Report Type: 
  Country: None (occurrence: None)
  Receive Date: 20110221
  Receipt Date: 20110207
  Transmission Date: 20110831
  Serious: Yes (Hospitalization, Other)
  Sender: FDA-Public Use
  Company Number: PHHY2010DE15289

PATIENT
  Sex: Female
  Weight: 77 kg

DRUGS (22)
  1. ASPIRIN [Concomitant]
     Dosage: 100 MG, DAILY
     Route: 048
     Dates: start: 20080317, end: 20100401
  2. ANGIOTENSIN CONVERTING ENZYME BLOCKERS [Concomitant]
     Route: 065
  3. DIURETICS [Concomitant]
     Route: 065
  4. ANTIHYPERTENSIVES [Concomitant]
     Route: 065
  5. PRAVASTATIN [Concomitant]
     Indication: ANGIOPATHY
     Dosage: 40 MG PER DAY
     Route: 048
     Dates: start: 20090609
  6. ANTIPLATELET [Concomitant]
  7. CONCOR [Concomitant]
     Indication: CAROTID ARTERY STENOSIS
     Dosage: 5 MG, DAILY
     Route: 048
     Dates: start: 20090101
  8. ALISKIREN [Suspect]
     Dosage: 150 MG PER DAY
     Route: 048
     Dates: start: 20091107
  9. OXAZEPAM [Concomitant]
     Indication: SLEEP DISORDER
     Dosage: 10 MG, DAILY
     Route: 048
     Dates: start: 20090101
  10. PROTAPHAN [Concomitant]
     Dosage: 22 I.U.
     Route: 058
     Dates: start: 20030430
  11. CHLOSTEROL-LOWERING THERAPY [Concomitant]
  12. PLATELETS [Concomitant]
     Route: 065
  13. TORSEMIDE [Concomitant]
     Dosage: 20 MG/D
     Route: 048
     Dates: start: 20081022
  14. NOVORAPID [Concomitant]
     Dosage: 44 I.U.
     Route: 058
     Dates: start: 20030430
  15. BETA BLOCKING AGENTS [Concomitant]
     Route: 065
  16. CALCIUM CHANNEL BLOCKERS [Concomitant]
     Route: 065
  17. AMLODIPINE [Concomitant]
     Dosage: 10 MG PER DAY
     Route: 048
     Dates: start: 20090806, end: 20100401
  18. ALISKIREN [Suspect]
     Indication: HYPERTENSION
     Dosage: 300 MG PER DAY
     Route: 048
     Dates: start: 20081022, end: 20090530
  19. INSULIN [Concomitant]
     Route: 065
  20. ATACAND [Concomitant]
     Dosage: 16 MG, DAILY
     Route: 048
     Dates: start: 20091104, end: 20100317
  21. BISOPROLOL [Concomitant]
     Dosage: 10 MG PER DAY
     Route: 048
     Dates: start: 20071203, end: 20100317
  22. PANTOPRAZOLE [Concomitant]
     Dosage: 40 MG/D
     Route: 048
     Dates: start: 20090609

REACTIONS (8)
  - BLOOD PRESSURE INCREASED [None]
  - PULMONARY CONGESTION [None]
  - RENAL FAILURE CHRONIC [None]
  - BLOOD POTASSIUM INCREASED [None]
  - GLYCOSYLATED HAEMOGLOBIN INCREASED [None]
  - DIALYSIS [None]
  - DYSPNOEA [None]
  - HYPERTENSIVE CRISIS [None]
